FAERS Safety Report 20786682 (Version 2)
Quarter: 2022Q2

REPORT INFORMATION
  Report Type: Other
  Country: AU (occurrence: AU)
  Receive Date: 20220505
  Receipt Date: 20220518
  Transmission Date: 20220721
  Serious: Yes (Hospitalization)
  Sender: FDA-Public Use
  Company Number: AU-002147023-NVSC2022AU095928

PATIENT
  Sex: Female

DRUGS (1)
  1. OMALIZUMAB [Suspect]
     Active Substance: OMALIZUMAB
     Indication: Mast cell activation syndrome
     Route: 065

REACTIONS (2)
  - Anaphylactic reaction [Unknown]
  - Drug ineffective [Unknown]
